FAERS Safety Report 7761424-8 (Version None)
Quarter: 2011Q3

REPORT INFORMATION
  Report Type: 
  Country: None (occurrence: None)
  Receive Date: 20110920
  Receipt Date: 20110912
  Transmission Date: 20111222
  Serious: Yes (Other)
  Sender: FDA-Public Use
  Company Number: US-PERRIGO-11US006935

PATIENT
  Sex: Female
  Weight: 86.168 kg

DRUGS (8)
  1. ACETAMINOPHEN [Suspect]
     Indication: ARTHRITIS
     Dosage: 1300-1950MG, DAILY
     Route: 048
     Dates: start: 20110623
  2. VENLAFAXINE HYDROCHLORIDE [Concomitant]
     Indication: DEPRESSION
     Dosage: TWICE DAILY
     Route: 065
  3. ZANTAC [Concomitant]
     Indication: PRODUCT USED FOR UNKNOWN INDICATION
     Dosage: 150 MG, BID
     Route: 048
  4. HYDROXYZINE [Concomitant]
     Indication: ANXIETY
  5. CLARITIN [Concomitant]
     Indication: ASTHMA
     Dosage: UNK, DAILY
     Route: 048
  6. VENLAFAXINE HYDROCHLORIDE [Concomitant]
     Indication: ANXIETY
  7. HYDROXYZINE [Concomitant]
     Indication: DEPRESSION
     Dosage: 6-7 TIMES DAILY
     Route: 065
  8. ASMANEX TWISTHALER [Concomitant]
     Indication: ASTHMA
     Dosage: UNK, DAILY
     Route: 055

REACTIONS (5)
  - BLOOD PRESSURE INCREASED [None]
  - MUSCULOSKELETAL STIFFNESS [None]
  - HEADACHE [None]
  - DYSPNOEA [None]
  - INCORRECT DRUG ADMINISTRATION DURATION [None]
